FAERS Safety Report 10166548 (Version 2)
Quarter: 2014Q2

REPORT INFORMATION
  Report Type: Spontaneous
  Country: US (occurrence: US)
  Receive Date: 20140512
  Receipt Date: 20140604
  Transmission Date: 20141212
  Serious: No
  Sender: FDA-Public Use
  Company Number: US-B.I. PHARMACEUTICALS,INC./RIDGEFIELD-2014-BI-19636BP

PATIENT
  Age: 70 Year
  Sex: Female
  Weight: 88.9 kg

DRUGS (1)
  1. SPIRIVA [Suspect]
     Indication: CHRONIC OBSTRUCTIVE PULMONARY DISEASE
     Dosage: 1 INHALATION
     Route: 055
     Dates: start: 20080410, end: 20140509

REACTIONS (2)
  - Dermatitis [Not Recovered/Not Resolved]
  - Insomnia [Not Recovered/Not Resolved]
